FAERS Safety Report 4632905-0 (Version None)
Quarter: 2005Q2

REPORT INFORMATION
  Report Type: 
  Country: None (occurrence: None)
  Receive Date: 20050412
  Receipt Date: 20050406
  Transmission Date: 20051028
  Serious: Yes (Other)
  Sender: FDA-Public Use
  Company Number: PHBS2005BR04926

PATIENT
  Age: 63 Year
  Sex: Female
  Weight: 69 kg

DRUGS (7)
  1. DIOVAN [Suspect]
     Indication: HYPERTENSION
     Dosage: 160 MG, BID
     Route: 048
     Dates: start: 20040401, end: 20050330
  2. ALDOMET [Concomitant]
     Indication: HYPERTENSION
     Dosage: UNK, UNK
     Route: 048
     Dates: start: 20040401
  3. NAPRIX [Concomitant]
     Indication: HYPERTENSION
     Dosage: 1 TAB/DAY
     Route: 048
     Dates: start: 20050318
  4. OXYGEN [Concomitant]
     Dosage: 30 MG/DAY
     Route: 048
     Dates: start: 20020101
  5. SOMALGIN [Concomitant]
     Indication: PROPHYLAXIS
     Dosage: 100 MG/DAY
     Route: 048
     Dates: start: 20040101
  6. CHLORDIAZEPOXIDE W/AMITRIPTYLINE [Concomitant]
     Indication: DEPRESSION
     Dosage: 1 DF, BID
     Route: 048
  7. RIVOTRIL [Concomitant]
     Dosage: UNK, UNK
     Route: 048

REACTIONS (5)
  - CEREBROVASCULAR ACCIDENT [None]
  - DYSPNOEA [None]
  - EPISTAXIS [None]
  - FACIAL PALSY [None]
  - HYPERTENSION [None]
